FAERS Safety Report 7478690-9 (Version None)
Quarter: 2011Q2

REPORT INFORMATION
  Report Type: 
  Country: None (occurrence: None)
  Receive Date: 20110513
  Receipt Date: 20110511
  Transmission Date: 20111010
  Serious: No
  Sender: FDA-Public Use
  Company Number: US-TEVA-281235USA

PATIENT
  Sex: Female
  Weight: 101.24 kg

DRUGS (3)
  1. COPAXONE [Suspect]
     Indication: MULTIPLE SCLEROSIS
     Dosage: 20 MILLIGRAM;
     Route: 058
  2. PRENATAL VITAMINS                  /01549301/ [Concomitant]
  3. NORTRIPTYLINE HYDROCHLORIDE [Concomitant]

REACTIONS (6)
  - FLUSHING [None]
  - EAR DISORDER [None]
  - NASAL CONGESTION [None]
  - SWOLLEN TONGUE [None]
  - FEELING HOT [None]
  - PRURITUS [None]
